FAERS Safety Report 7148168-0 (Version None)
Quarter: 2010Q4

REPORT INFORMATION
  Report Type: 
  Country: None (occurrence: None)
  Receive Date: 20101209
  Receipt Date: 20101202
  Transmission Date: 20110411
  Serious: Yes (Other)
  Sender: FDA-Public Use
  Company Number: BR-US-EMD SERONO, INC.-7030993

PATIENT
  Sex: Male

DRUGS (2)
  1. REBIF [Suspect]
     Indication: RELAPSING-REMITTING MULTIPLE SCLEROSIS
     Dates: start: 20000101
  2. SIMVASTATIN [Concomitant]

REACTIONS (2)
  - BLOOD TRIGLYCERIDES ABNORMAL [None]
  - SERUM FERRITIN ABNORMAL [None]
